FAERS Safety Report 9841045 (Version 1)
Quarter: 2014Q1

REPORT INFORMATION
  Report Type: Spontaneous
  Country: US (occurrence: None)
  Receive Date: 20140123
  Receipt Date: 20140123
  Transmission Date: 20141002
  Serious: Yes (Hospitalization)
  Sender: FDA-Public Use
  Company Number: None

PATIENT
  Age: 58 Year
  Sex: Male
  Weight: 63.05 kg

DRUGS (21)
  1. ZIPRASIDONE [Suspect]
     Indication: SCHIZOPHRENIA
     Route: 048
     Dates: start: 20130428, end: 20130428
  2. VENLAFAXINE XR [Concomitant]
  3. TRAVAPROST [Concomitant]
  4. RISPERIDONE [Concomitant]
  5. OXYCODONE/ACETAMINOPHEN [Concomitant]
  6. MORPHINE CR [Concomitant]
  7. BENZTROPINE [Concomitant]
  8. BUPROPRION SR [Concomitant]
  9. BUSPIRONE [Concomitant]
  10. CELECOXIB [Concomitant]
  11. CHLORAL HYDRATE [Concomitant]
  12. DIAZEPAM [Concomitant]
  13. DIPHENHYDRAMINE [Concomitant]
  14. ENOXAPARIN [Concomitant]
  15. FLURAZEPAM [Concomitant]
  16. LEVOFLOXACIN [Concomitant]
  17. METRONIDAZOLE [Concomitant]
  18. LIDOCAINE OINTMENT [Concomitant]
  19. LISINOPRIL/HCTZ [Concomitant]
  20. LORATADINE/ PSEUDOEPHEDRINE [Concomitant]
  21. METHYLPHENIDATE [Concomitant]

REACTIONS (2)
  - Unresponsive to stimuli [None]
  - Colitis ischaemic [None]
